FAERS Safety Report 7347571-3 (Version None)
Quarter: 2011Q1

REPORT INFORMATION
  Report Type: 
  Country: None (occurrence: None)
  Receive Date: 20110311
  Receipt Date: 20110228
  Transmission Date: 20110831
  Serious: Yes (Hospitalization, Other)
  Sender: FDA-Public Use
  Company Number: US-TYCO HEALTHCARE/MALLINCKRODT-T201002017

PATIENT
  Sex: Male
  Weight: 126.53 kg

DRUGS (13)
  1. OMNISCAN [Suspect]
     Indication: NUCLEAR MAGNETIC RESONANCE IMAGING BRAIN
     Dosage: UNK
     Dates: start: 19991206, end: 19991206
  2. CONTRAST MEDIA [Suspect]
     Indication: NUCLEAR MAGNETIC RESONANCE IMAGING BRAIN
     Dosage: UNK
     Dates: start: 20010818, end: 20010818
  3. OMNISCAN [Suspect]
     Indication: NUCLEAR MAGNETIC RESONANCE IMAGING
     Dosage: UNK
     Dates: start: 20010227, end: 20010227
  4. MAGNEVIST [Suspect]
     Indication: NUCLEAR MAGNETIC RESONANCE IMAGING BRAIN
     Dosage: UNK
     Dates: start: 20020205, end: 20020205
  5. GADOLINIUM [Suspect]
     Indication: NUCLEAR MAGNETIC RESONANCE IMAGING BRAIN
     Dosage: UNK
     Dates: start: 20021126, end: 20021126
  6. OMNISCAN [Suspect]
     Dosage: UNK
     Dates: start: 20011211, end: 20011211
  7. OMNISCAN [Suspect]
     Indication: NUCLEAR MAGNETIC RESONANCE IMAGING ABDOMINAL
     Dosage: UNK
     Dates: start: 20001016, end: 20001016
  8. OPTIMARK [Suspect]
     Indication: NUCLEAR MAGNETIC RESONANCE IMAGING
     Dosage: UNK
     Dates: start: 20040923, end: 20040923
  9. OMNISCAN [Suspect]
     Dosage: UNK
     Dates: start: 20010815, end: 20010815
  10. MAGNEVIST [Suspect]
     Dosage: 20 ML, SINGLE
     Dates: start: 20020508, end: 20020508
  11. OMNISCAN [Suspect]
     Dosage: 20 ML, SINGLE
     Dates: start: 20010730, end: 20010730
  12. OPTIMARK [Suspect]
  13. OMNISCAN [Suspect]
     Dosage: UNK
     Dates: start: 20020815, end: 20020815

REACTIONS (37)
  - PNEUMONIA [None]
  - INTERVERTEBRAL DISCITIS [None]
  - MUSCULAR WEAKNESS [None]
  - INSOMNIA [None]
  - FALL [None]
  - BACK PAIN [None]
  - ACCIDENTAL POISONING [None]
  - OSTEOMYELITIS [None]
  - DEVICE RELATED INFECTION [None]
  - RADICULOPATHY [None]
  - GYNAECOMASTIA [None]
  - GOITRE [None]
  - UPPER EXTREMITY MASS [None]
  - RESTLESS LEGS SYNDROME [None]
  - SEASONAL ALLERGY [None]
  - URINARY TRACT INFECTION [None]
  - GOUTY ARTHRITIS [None]
  - ASTEATOSIS [None]
  - CONJUNCTIVITIS [None]
  - VASCULAR PSEUDOANEURYSM RUPTURED [None]
  - ABSCESS LIMB [None]
  - BRONCHITIS [None]
  - FOOT FRACTURE [None]
  - NEPHROGENIC SYSTEMIC FIBROSIS [None]
  - HEPARIN-INDUCED THROMBOCYTOPENIA [None]
  - DEPRESSION [None]
  - COUGH [None]
  - EUSTACHIAN TUBE DISORDER [None]
  - NECK PAIN [None]
  - HYPERPARATHYROIDISM [None]
  - ARTERIOVENOUS FISTULA THROMBOSIS [None]
  - RENAL FAILURE CHRONIC [None]
  - WINGED SCAPULA [None]
  - DYSPNOEA [None]
  - HYPERPHOSPHATAEMIA [None]
  - ARTERIOVENOUS FISTULA SITE HAEMATOMA [None]
  - LACERATION [None]
